FAERS Safety Report 4293952-4 (Version None)
Quarter: 2004Q1

REPORT INFORMATION
  Report Type: 
  Country: None (occurrence: None)
  Receive Date: 20040212
  Receipt Date: 20040203
  Transmission Date: 20041129
  Serious: Yes (Life-Threatening, Hospitalization)
  Sender: FDA-Public Use
  Company Number: 000804

PATIENT
  Age: 69 Year
  Sex: Male

DRUGS (3)
  1. TREXALL(METHOTREXATE)TREXALL(METHOTREXATE) TABLET, UNK [Suspect]
  2. KINERET (ANAKINRA)INJECTION [Suspect]
     Indication: RHEUMATOID ARTHRITIS
     Dosage: 100.00 MG, QD, SUBCUTANEOUS
     Route: 058
     Dates: start: 20020708, end: 20021123
  3. PREDNISOLONE [Suspect]
     Dosage: 5.00 MG, ORAL
     Route: 048

REACTIONS (1)
  - UROSEPSIS [None]
